FAERS Safety Report 6101324-2 (Version None)
Quarter: 2009Q1

REPORT INFORMATION
  Report Type: 
  Country: None (occurrence: None)
  Receive Date: 20090227
  Receipt Date: 20090217
  Transmission Date: 20090719
  Serious: Yes (Death)
  Sender: FDA-Public Use
  Company Number: PAR_02852_2009

PATIENT
  Age: 33 Year
  Sex: Male

DRUGS (5)
  1. ALPRAZOLAM [Suspect]
     Indication: DRUG USE FOR UNKNOWN INDICATION
     Dosage: (DF)
  2. HYDROCODONE [Suspect]
     Indication: DRUG USE FOR UNKNOWN INDICATION
     Dosage: (DF)
  3. CITALOPRAM HYDROBROMIDE [Suspect]
     Indication: DRUG USE FOR UNKNOWN INDICATION
     Dosage: (DF)
  4. ACETAMINOPHEN [Concomitant]
  5. ECGONINE METHYL ESTER [Concomitant]

REACTIONS (4)
  - ACCIDENTAL DEATH [None]
  - ALCOHOL USE [None]
  - CORONARY ARTERY THROMBOSIS [None]
  - DRUG TOXICITY [None]
